FAERS Safety Report 8891041 (Version 1)
Quarter: 2012Q4

REPORT INFORMATION
  Report Type: Report from Study
  Country: US (occurrence: US)
  Receive Date: 20121107
  Receipt Date: 20121107
  Transmission Date: 20130627
  Serious: Yes (Hospitalization, Other)
  Sender: FDA-Public Use
  Company Number: US-ABBOTT-12P-163-1002179-00

PATIENT
  Age: 59 Year
  Sex: Female

DRUGS (6)
  1. HUMIRA [Suspect]
     Indication: CROHN^S DISEASE
     Dates: start: 2008
  2. COUMADIN [Concomitant]
     Indication: THROMBOSIS
  3. HYDROCODONE [Concomitant]
     Indication: INTERVERTEBRAL DISC PROTRUSION
     Dosage: 5/500 MG (takes on average 2 tablets a day)
  4. CYCLOBENZAPRINE [Concomitant]
     Indication: MUSCLE RELAXANT THERAPY
  5. CYCLOBENZAPRINE [Concomitant]
     Indication: INTERVERTEBRAL DISC PROTRUSION
  6. B-12 [Concomitant]
     Indication: VITAMIN B12 DEFICIENCY
     Route: 050

REACTIONS (18)
  - Blood potassium decreased [Unknown]
  - Dehydration [Unknown]
  - Rotator cuff syndrome [Unknown]
  - Dry mouth [Unknown]
  - Pollakiuria [Unknown]
  - Pain [Unknown]
  - Hypotension [Unknown]
  - Vision blurred [Unknown]
  - Dry eye [Unknown]
  - Cataract [Unknown]
  - Back pain [Unknown]
  - Fall [Unknown]
  - Dizziness [Unknown]
  - Road traffic accident [Unknown]
  - Convulsion [Not Recovered/Not Resolved]
  - Hypotension [Unknown]
  - Fall [Unknown]
  - Convulsion [Unknown]
